FAERS Safety Report 5632213-5 (Version None)
Quarter: 2008Q1

REPORT INFORMATION
  Report Type: 
  Country: None (occurrence: None)
  Receive Date: 20080220
  Receipt Date: 20080214
  Transmission Date: 20080703
  Serious: Yes (Death)
  Sender: FDA-Public Use
  Company Number: BE-ROCHE-527060

PATIENT
  Age: 83 Year
  Sex: Female
  Weight: 72 kg

DRUGS (6)
  1. XELODA [Suspect]
     Indication: DRUG USE FOR UNKNOWN INDICATION
     Dosage: DOSE TAKEN TWICE DAILY (MORNING AND EVENING) FOR 14 DAYS FOLLOWED BY A 7 DAY REST PERIOD.
     Route: 048
     Dates: start: 20071003, end: 20071016
  2. OMEPRAZOLE [Concomitant]
     Indication: OESOPHAGITIS
     Dosage: FREQUENCY REPORTED: DAILY
     Route: 048
     Dates: start: 20060101, end: 20071017
  3. AVANDIA [Concomitant]
     Dosage: FREQUENCY REPORTED: DAILY.
     Route: 048
     Dates: start: 20060101, end: 20071017
  4. METFORMAX [Concomitant]
     Route: 048
     Dates: start: 20040101, end: 20071017
  5. SIMVASTATIN [Concomitant]
     Indication: HYPERCHOLESTEROLAEMIA
     Dosage: FREQUENCY REPORTED: DAILY.
     Route: 048
     Dates: start: 20040101, end: 20071017
  6. PROPANOL [Concomitant]
     Indication: HYPERTENSION
     Route: 048
     Dates: start: 20000101, end: 20071017

REACTIONS (2)
  - INTESTINAL ISCHAEMIA [None]
  - SEPSIS [None]
